FAERS Safety Report 5108672-3 (Version None)
Quarter: 2006Q3

REPORT INFORMATION
  Report Type: 
  Country: None (occurrence: None)
  Receive Date: 20060914
  Receipt Date: 20060905
  Transmission Date: 20061208
  Serious: Yes (Other)
  Sender: FDA-Public Use
  Company Number: GBWYE902312SEP06

PATIENT
  Sex: 0

DRUGS (1)
  1. EFFEXOR XR [Suspect]

REACTIONS (1)
  - MACULAR DEGENERATION [None]
